FAERS Safety Report 5692904-7 (Version None)
Quarter: 2008Q2

REPORT INFORMATION
  Report Type: 
  Country: None (occurrence: None)
  Receive Date: 20080327
  Receipt Date: 20080110
  Transmission Date: 20081010
  Serious: Yes (Other)
  Sender: FDA-Public Use
  Company Number: A03200800110

PATIENT
  Age: 96 Year
  Sex: Female

DRUGS (2)
  1. AMBIEN CR [Suspect]
     Indication: INSOMNIA
     Dosage: ORAL
     Route: 048
     Dates: start: 20080101, end: 20080104
  2. SIMVASTATIN [Concomitant]

REACTIONS (1)
  - HALLUCINATION [None]
